FAERS Safety Report 5157811-7 (Version None)
Quarter: 2006Q4

REPORT INFORMATION
  Report Type: 
  Country: None (occurrence: None)
  Receive Date: 20061127
  Receipt Date: 20051024
  Transmission Date: 20070319
  Serious: Yes (Hospitalization)
  Sender: FDA-Public Use
  Company Number: IT-ROCHE-422349

PATIENT
  Age: 53 Year
  Sex: Female

DRUGS (2)
  1. CAPECITABINE [Suspect]
     Indication: BREAST CANCER
     Dosage: UNKNOWN FREQUENCY
     Route: 048
     Dates: start: 20050831, end: 20050908
  2. ZANIDIP [Concomitant]
     Dates: start: 20030615

REACTIONS (7)
  - ANAEMIA [None]
  - LEUKOPENIA [None]
  - MUCOSAL INFLAMMATION [None]
  - NEUTROPENIA [None]
  - PLATELET COUNT DECREASED [None]
  - PYREXIA [None]
  - STEVENS-JOHNSON SYNDROME [None]
